FAERS Safety Report 10552290 (Version 2)
Quarter: 2014Q4

REPORT INFORMATION
  Report Type: Report from Study
  Country: CA (occurrence: CA)
  Receive Date: 20141029
  Receipt Date: 20141225
  Transmission Date: 20150529
  Serious: Yes (Other)
  Sender: FDA-Public Use
  Company Number: CA-BRISTOL-MYERS SQUIBB COMPANY-21539408

PATIENT
  Sex: Female

DRUGS (11)
  1. PLAQUENIL [Concomitant]
     Active Substance: HYDROXYCHLOROQUINE SULFATE
  2. ALDACTONE [Concomitant]
     Active Substance: SPIRONOLACTONE
  3. VENLAFAXINE HCL [Concomitant]
     Active Substance: VENLAFAXINE HYDROCHLORIDE
  4. ABATACEPT [Suspect]
     Active Substance: ABATACEPT
     Indication: RHEUMATOID ARTHRITIS
     Dosage: ONG
     Route: 042
     Dates: start: 20111215
  5. VITAMIN B12 [Concomitant]
     Active Substance: CYANOCOBALAMIN
  6. CLONAZEPAM. [Concomitant]
     Active Substance: CLONAZEPAM
  7. PANTOPRAZOLE [Concomitant]
     Active Substance: PANTOPRAZOLE SODIUM
  8. ISONIAZID. [Concomitant]
     Active Substance: ISONIAZID
  9. ADALAT [Concomitant]
     Active Substance: NIFEDIPINE
  10. DOMPERIDONE [Concomitant]
     Active Substance: DOMPERIDONE
  11. ELAVIL [Concomitant]
     Active Substance: AMITRIPTYLINE HYDROCHLORIDE

REACTIONS (2)
  - Herpes zoster [Unknown]
  - Cataract [Unknown]
